FAERS Safety Report 7088026-3 (Version None)
Quarter: 2010Q4

REPORT INFORMATION
  Report Type: 
  Country: None (occurrence: None)
  Receive Date: 20101108
  Receipt Date: 20101025
  Transmission Date: 20110411
  Serious: Yes (Death, Hospitalization, Other)
  Sender: FDA-Public Use
  Company Number: DE-CELGENEUS-062-21880-10090442

PATIENT
  Age: 66 Year
  Sex: Male
  Weight: 60 kg

DRUGS (9)
  1. REVLIMID [Suspect]
     Indication: PLASMACYTOMA
     Route: 048
     Dates: start: 20100501, end: 20100901
  2. DEXAMETHASONE [Concomitant]
     Indication: PLASMACYTOMA
     Route: 065
     Dates: start: 20100827
  3. TORSEMIDE [Concomitant]
     Route: 065
  4. PANTOPRAZOLE [Concomitant]
     Indication: PROPHYLAXIS
     Route: 065
  5. CALCIUM [Concomitant]
     Indication: OSTEOPENIA
     Route: 065
  6. EMBOLEX [Concomitant]
     Indication: THROMBOSIS PROPHYLAXIS
     Route: 065
  7. NEO RECORMON [Concomitant]
     Route: 065
  8. INSULIN [Concomitant]
     Route: 065
  9. LMWH [Concomitant]
     Indication: THROMBOSIS PROPHYLAXIS
     Route: 065

REACTIONS (2)
  - ASPERGILLOMA [None]
  - SEPSIS [None]
